FAERS Safety Report 14365316 (Version 1)
Quarter: 2018Q1

REPORT INFORMATION
  Report Type: Spontaneous
  Country: US (occurrence: US)
  Receive Date: 20180108
  Receipt Date: 20180108
  Transmission Date: 20180509
  Serious: No
  Sender: FDA-Public Use
  Company Number: US-ASTRAZENECA-2017SF31170

PATIENT
  Age: 10483 Day
  Sex: Female
  Weight: 68 kg

DRUGS (4)
  1. NEXIUM [Suspect]
     Active Substance: ESOMEPRAZOLE MAGNESIUM
     Indication: NAUSEA
     Dosage: UNKNOWN, EVERY DAY
     Route: 048
     Dates: start: 20171126, end: 20171129
  2. NEXIUM [Suspect]
     Active Substance: ESOMEPRAZOLE MAGNESIUM
     Indication: GASTROENTERITIS
     Dosage: UNKNOWN, EVERY DAY
     Route: 048
     Dates: start: 20171126, end: 20171129
  3. CEFADROXIL. [Concomitant]
     Active Substance: CEFADROXIL
     Indication: URINARY TRACT INFECTION
     Dates: start: 20171126
  4. NEXIUM [Suspect]
     Active Substance: ESOMEPRAZOLE MAGNESIUM
     Indication: VOMITING
     Dosage: UNKNOWN, EVERY DAY
     Route: 048
     Dates: start: 20171126, end: 20171129

REACTIONS (4)
  - Dysphonia [Not Recovered/Not Resolved]
  - Product use in unapproved indication [Recovered/Resolved]
  - Off label use [Recovered/Resolved]
  - Oropharyngeal pain [Recovered/Resolved]

NARRATIVE: CASE EVENT DATE: 20171126
